FAERS Safety Report 15977783 (Version 1)
Quarter: 2019Q1

REPORT INFORMATION
  Report Type: Spontaneous
  Country: US (occurrence: US)
  Receive Date: 20190218
  Receipt Date: 20190218
  Transmission Date: 20190418
  Serious: Yes (Hospitalization)
  Sender: FDA-Public Use
  Company Number: US-BRACCO-2018US04810

PATIENT
  Age: 57 Year
  Sex: Female

DRUGS (1)
  1. ISOVUE 300 [Suspect]
     Active Substance: IOPAMIDOL
     Indication: FISTULOGRAM
     Dosage: 36 ML, SINGLE
     Route: 042
     Dates: start: 20180913, end: 20180913

REACTIONS (2)
  - Blood creatinine increased [Recovering/Resolving]
  - Anaphylactic reaction [Recovered/Resolved]

NARRATIVE: CASE EVENT DATE: 20180913
